FAERS Safety Report 23745496 (Version 9)
Quarter: 2025Q2

REPORT INFORMATION
  Report Type: Report from Study
  Country: CA (occurrence: CA)
  Receive Date: 20240416
  Receipt Date: 20250414
  Transmission Date: 20250716
  Serious: Yes (Hospitalization, Other)
  Sender: NOVARTIS
  Company Number: CA-002147023-NVSC2024CA025483

PATIENT
  Age: 40 Year
  Sex: Female

DRUGS (6)
  1. COSENTYX [Suspect]
     Active Substance: SECUKINUMAB
     Indication: Ankylosing spondylitis
     Dosage: 150 MG, QW (WEEKS 0, 1, 2, 3, AND 4)
     Route: 058
     Dates: start: 20240119
  2. COSENTYX [Suspect]
     Active Substance: SECUKINUMAB
     Dosage: 300 MG, Q4W
     Route: 058
  3. COSENTYX [Suspect]
     Active Substance: SECUKINUMAB
     Route: 065
  4. COSENTYX [Suspect]
     Active Substance: SECUKINUMAB
     Dosage: 150 MG, QMO
     Route: 058
  5. COSENTYX [Suspect]
     Active Substance: SECUKINUMAB
     Dosage: 150 MG, Q4W
     Route: 058
     Dates: end: 20240429
  6. METFORMIN [Concomitant]
     Active Substance: METFORMIN HYDROCHLORIDE
     Indication: Product used for unknown indication
     Route: 065

REACTIONS (34)
  - Pain [Unknown]
  - Inflammation [Recovering/Resolving]
  - Pharyngeal inflammation [Unknown]
  - Nasal inflammation [Unknown]
  - Diabetes mellitus [Unknown]
  - Decreased immune responsiveness [Unknown]
  - Blood test abnormal [Unknown]
  - Fatigue [Unknown]
  - Formication [Unknown]
  - Feeling hot [Unknown]
  - Constipation [Unknown]
  - Discomfort [Unknown]
  - Nasopharyngitis [Unknown]
  - Sinus pain [Unknown]
  - Throat irritation [Unknown]
  - Dry throat [Unknown]
  - Malaise [Unknown]
  - Chest pain [Unknown]
  - Dyspnoea [Unknown]
  - Cough [Unknown]
  - Rash [Unknown]
  - Wound [Recovered/Resolved]
  - Diarrhoea [Unknown]
  - Chills [Unknown]
  - Pruritus [Unknown]
  - Stress [Unknown]
  - Anxiety [Unknown]
  - Rash pruritic [Unknown]
  - Skin haemorrhage [Unknown]
  - Drug ineffective [Unknown]
  - Scabies [Unknown]
  - Inappropriate schedule of product administration [Unknown]
  - Dizziness [Unknown]
  - Scratch [Unknown]

NARRATIVE: CASE EVENT DATE: 20240401
